FAERS Safety Report 12856714 (Version 1)
Quarter: 2016Q4

REPORT INFORMATION
  Report Type: Spontaneous
  Country: US (occurrence: US)
  Receive Date: 20161018
  Receipt Date: 20161018
  Transmission Date: 20170207
  Serious: Yes (Disabling, Other)
  Sender: FDA-Public Use
  Company Number: None

PATIENT
  Age: 72 Year
  Sex: Female
  Weight: 64.92 kg

DRUGS (7)
  1. ASA [Concomitant]
     Active Substance: ASPIRIN
  2. TART CHERRY [Concomitant]
  3. VALACYCLOVIR TAB 1 GM [Suspect]
     Active Substance: VALACYCLOVIR HYDROCHLORIDE
     Indication: HERPES ZOSTER
     Dosage: ?          QUANTITY:.(ILR^RMB 8?, MOMT 3X11?;?
     Route: 048
     Dates: start: 20160823, end: 20160828
  4. CQ10 [Concomitant]
     Active Substance: UBIDECARENONE
  5. VALTREX [Concomitant]
     Active Substance: VALACYCLOVIR HYDROCHLORIDE
  6. AZITHROMYCIN 250MG PAK TAB GR [Suspect]
     Active Substance: AZITHROMYCIN ANHYDROUS
  7. CENTRUM SENIOR VITAMINS [Concomitant]

REACTIONS (8)
  - Gait disturbance [None]
  - Hypersomnia [None]
  - Feeling abnormal [None]
  - Asthenia [None]
  - Dysgeusia [None]
  - Tremor [None]
  - Fatigue [None]
  - Rash [None]

NARRATIVE: CASE EVENT DATE: 20160823
